FAERS Safety Report 21468583 (Version 4)
Quarter: 2023Q1

REPORT INFORMATION
  Report Type: Spontaneous
  Country: JP (occurrence: JP)
  Receive Date: 20221017
  Receipt Date: 20230224
  Transmission Date: 20230418
  Serious: Yes (Hospitalization, Other)
  Sender: FDA-Public Use
  Company Number: JP-BRISTOL-MYERS SQUIBB COMPANY-2022-070359

PATIENT
  Age: 66 Year
  Sex: Male
  Weight: 76.8 kg

DRUGS (15)
  1. YERVOY [Suspect]
     Active Substance: IPILIMUMAB
     Indication: Malignant melanoma
     Dosage: 3 DOSES
     Route: 041
     Dates: start: 20211013, end: 20211013
  2. YERVOY [Suspect]
     Active Substance: IPILIMUMAB
     Route: 041
     Dates: start: 20220520, end: 20220722
  3. OPDIVO [Suspect]
     Active Substance: NIVOLUMAB
     Indication: Malignant melanoma
     Dosage: 3 MG/KG, 240 MG
     Route: 041
     Dates: start: 20200304, end: 20210804
  4. OPDIVO [Suspect]
     Active Substance: NIVOLUMAB
     Route: 041
     Dates: start: 20211013, end: 20211013
  5. OPDIVO [Suspect]
     Active Substance: NIVOLUMAB
     Route: 041
     Dates: start: 20220916
  6. PREDNISOLONE [Suspect]
     Active Substance: PREDNISOLONE
     Indication: Pemphigoid
     Dosage: DOSE: 25
     Route: 048
     Dates: start: 20211112, end: 20211118
  7. PREDNISOLONE [Suspect]
     Active Substance: PREDNISOLONE
     Dosage: DOSE: 30
     Route: 048
     Dates: start: 20211119, end: 20211202
  8. PREDNISOLONE [Suspect]
     Active Substance: PREDNISOLONE
     Dosage: DOSE: 25
     Route: 048
     Dates: start: 20211203, end: 20211227
  9. PREDNISOLONE [Suspect]
     Active Substance: PREDNISOLONE
     Dosage: DOSE: 20
     Route: 048
     Dates: start: 20211228, end: 20220110
  10. PREDNISOLONE [Suspect]
     Active Substance: PREDNISOLONE
     Dosage: DOSE: 15
     Route: 048
     Dates: start: 20220111
  11. PREDNISOLONE [Suspect]
     Active Substance: PREDNISOLONE
     Dosage: DOSE: 10
     Route: 048
  12. PREDNISOLONE [Suspect]
     Active Substance: PREDNISOLONE
     Dosage: DOSE: 7.5
     Route: 048
     Dates: start: 20220301, end: 20220314
  13. PREDNISOLONE [Suspect]
     Active Substance: PREDNISOLONE
     Dosage: DOSE:7.5, 5 - QOD
     Route: 048
     Dates: start: 20220315, end: 20220331
  14. PREDNISOLONE [Suspect]
     Active Substance: PREDNISOLONE
     Dosage: DOSE:5
     Route: 048
     Dates: start: 20220401
  15. PREDNISOLONE [Suspect]
     Active Substance: PREDNISOLONE
     Dosage: DOSE: 30
     Route: 048
     Dates: start: 20211105, end: 20211111

REACTIONS (6)
  - Pemphigoid [Recovering/Resolving]
  - Hepatic function abnormal [Recovered/Resolved]
  - Malaise [Recovered/Resolved]
  - Nasopharyngitis [Recovered/Resolved]
  - C-reactive protein increased [Unknown]
  - Decreased appetite [Unknown]

NARRATIVE: CASE EVENT DATE: 20211027
